FAERS Safety Report 5357205-5 (Version None)
Quarter: 2007Q2

REPORT INFORMATION
  Report Type: 
  Country: None (occurrence: None)
  Receive Date: 20070614
  Receipt Date: 20070607
  Transmission Date: 20071010
  Serious: Yes (Other)
  Sender: FDA-Public Use
  Company Number: BR-JNJFOC-20070602285

PATIENT
  Age: 10 Year
  Sex: Female
  Weight: 13 kg

DRUGS (1)
  1. HALDOL [Suspect]
     Indication: DRUG USE FOR UNKNOWN INDICATION

REACTIONS (3)
  - ACCIDENTAL DRUG INTAKE BY CHILD [None]
  - EXTRAPYRAMIDAL DISORDER [None]
  - MYALGIA [None]
